FAERS Safety Report 18512451 (Version 1)
Quarter: 2020Q4

REPORT INFORMATION
  Report Type: Spontaneous
  Country: US (occurrence: US)
  Receive Date: 20201117
  Receipt Date: 20201117
  Transmission Date: 20210114
  Serious: No
  Sender: FDA-Public Use
  Company Number: US-ASTRAZENECA-2020SF47357

PATIENT
  Sex: Male

DRUGS (1)
  1. SEROQUEL [Suspect]
     Active Substance: QUETIAPINE FUMARATE
     Dosage: UNKNOWN
     Route: 048

REACTIONS (7)
  - Frustration tolerance decreased [Unknown]
  - Psychosexual disorder [Unknown]
  - Discomfort [Unknown]
  - Feeling abnormal [Unknown]
  - Schizophrenia [Unknown]
  - Depression [Unknown]
  - Illness [Unknown]
